FAERS Safety Report 7542938-2 (Version None)
Quarter: 2011Q2

REPORT INFORMATION
  Report Type: 
  Country: None (occurrence: None)
  Receive Date: 20110613
  Receipt Date: 20110531
  Transmission Date: 20111010
  Serious: Yes (Hospitalization, Other)
  Sender: FDA-Public Use
  Company Number: PHHY2011BR48434

PATIENT
  Sex: Female

DRUGS (6)
  1. DIOVAN [Suspect]
     Indication: HYPERTENSION
     Dosage: 1 DF A DAY
     Route: 048
  2. GLIMEPIRIDE [Concomitant]
     Indication: DIABETES PROPHYLAXIS
     Dosage: 3 DF A DAY
     Route: 048
  3. FORMIN (METFORMIN) [Concomitant]
     Indication: DIABETES MELLITUS
     Dosage: 0.5 DF A DAY
     Route: 048
  4. FORMIN (METFORMIN) [Concomitant]
     Indication: BLOOD CHOLESTEROL
  5. FLUOXETINE HCL [Concomitant]
     Indication: DEPRESSION
     Dosage: 1 DF A DAY
     Route: 048
  6. CLONAZEPAM [Concomitant]
     Indication: INSOMNIA
     Dosage: 1 DF, WHEN NECESSARY
     Route: 048

REACTIONS (6)
  - CARDIAC DISORDER [None]
  - BLOOD GLUCOSE INCREASED [None]
  - BLOOD PRESSURE INCREASED [None]
  - VOMITING [None]
  - BLOOD PRESSURE FLUCTUATION [None]
  - HYPERSENSITIVITY [None]
